FAERS Safety Report 4684668-0 (Version None)
Quarter: 2005Q2

REPORT INFORMATION
  Report Type: 
  Country: None (occurrence: None)
  Receive Date: 20050531
  Receipt Date: 20041214
  Transmission Date: 20051028
  Serious: Yes (Hospitalization)
  Sender: FDA-Public Use
  Company Number: US_0501110006

PATIENT
  Age: 44 Year
  Sex: Female

DRUGS (22)
  1. ZYPREXA [Suspect]
     Indication: BIPOLAR DISORDER
     Dosage: 30 MG/DAY
     Dates: start: 19980701, end: 20010613
  2. ZYPREXA [Suspect]
     Indication: DEPRESSION
     Dosage: 30 MG/DAY
     Dates: start: 19980701, end: 20010613
  3. EFFEXOR XR [Concomitant]
  4. MEURONTIN (GABAPENTIN PFIZER) [Concomitant]
  5. MOTRIN (IBUPROFEN) [Concomitant]
  6. LEVOTHYROXINE [Concomitant]
  7. ACIFUGAN [Concomitant]
  8. FLEXERIL [Concomitant]
  9. BENADRYL [Concomitant]
  10. BENTYL [Concomitant]
  11. ZOLOFT [Concomitant]
  12. REMERON (MIRTAZAPINE ORIFARM) [Concomitant]
  13. LITHIUM [Concomitant]
  14. FERROUS SULFATE TAB [Concomitant]
  15. LORTAB [Concomitant]
  16. VIOXX [Concomitant]
  17. AMILORID/HCTZ [Concomitant]
  18. ACTOS [Concomitant]
  19. GEODON [Concomitant]
  20. GLUCOTROL XL [Concomitant]
  21. TYLENOL (CAPLET) [Concomitant]
  22. HYDROCODONE BITARTRATE [Concomitant]

REACTIONS (2)
  - DIABETES MELLITUS [None]
  - PRESCRIBED OVERDOSE [None]
